FAERS Safety Report 7553503-5 (Version None)
Quarter: 2011Q2

REPORT INFORMATION
  Report Type: 
  Country: None (occurrence: None)
  Receive Date: 20110617
  Receipt Date: 20101228
  Transmission Date: 20111010
  Serious: Yes (Hospitalization, Other)
  Sender: FDA-Public Use
  Company Number: US-BAYER-201039692NA

PATIENT
  Age: 42 Year
  Sex: Female
  Weight: 92.971 kg

DRUGS (17)
  1. HUMALOG [Concomitant]
     Indication: DIABETES MELLITUS
     Dosage: UNK
     Dates: start: 20000101
  2. PROPOFOL [Concomitant]
  3. ZOFRAN [Concomitant]
  4. YAZ [Suspect]
     Indication: PRODUCT USED FOR UNKNOWN INDICATION
  5. HYDROCODONE [Concomitant]
  6. PERCOCET [Concomitant]
  7. NITROGLYCERIN [Concomitant]
  8. VASOTEC [Concomitant]
  9. IBUPROFEN [Concomitant]
  10. EXCEDRIN (MIGRAINE) [Concomitant]
  11. ULTRACET [Concomitant]
  12. VESICARE [Concomitant]
     Indication: INCONTINENCE
     Dosage: UNK
     Dates: start: 20060101, end: 20090101
  13. ENABLEX [Concomitant]
  14. VICODIN [Concomitant]
  15. YASMIN [Suspect]
     Indication: CONTRACEPTION
     Route: 048
     Dates: start: 20000101, end: 20070901
  16. DECONGESTANTS AND ANTIALLERGICS [Concomitant]
  17. TESSALON [Concomitant]

REACTIONS (2)
  - DEEP VEIN THROMBOSIS [None]
  - PULMONARY EMBOLISM [None]
